FAERS Safety Report 7024498-8 (Version None)
Quarter: 2010Q4

REPORT INFORMATION
  Report Type: 
  Country: None (occurrence: None)
  Receive Date: 20101001
  Receipt Date: 20100923
  Transmission Date: 20110411
  Serious: Yes (Hospitalization)
  Sender: FDA-Public Use
  Company Number: A0877692A

PATIENT
  Age: 55 Year
  Sex: Female

DRUGS (1)
  1. LOVAZA [Suspect]
     Indication: BLOOD CHOLESTEROL INCREASED
     Dosage: 1G FOUR TIMES PER DAY
     Route: 048
     Dates: start: 20091230, end: 20100726

REACTIONS (10)
  - ARRHYTHMIA [None]
  - CARDIAC DISORDER [None]
  - EPISTAXIS [None]
  - HOSPITALISATION [None]
  - LARYNGITIS [None]
  - MIGRAINE [None]
  - OROPHARYNGEAL PAIN [None]
  - OXYGEN SATURATION DECREASED [None]
  - RHINITIS [None]
  - TACHYCARDIA [None]
